FAERS Safety Report 7726975-0 (Version None)
Quarter: 2011Q3

REPORT INFORMATION
  Report Type: 
  Country: None (occurrence: None)
  Receive Date: 20110902
  Receipt Date: 20110830
  Transmission Date: 20111222
  Serious: Yes (Hospitalization)
  Sender: FDA-Public Use
  Company Number: GB-PFIZER INC-2011201648

PATIENT
  Age: 48 Year
  Sex: Male

DRUGS (3)
  1. VARENICLINE TARTRATE [Suspect]
     Dosage: UNK
     Dates: start: 20110101, end: 20110101
  2. ACETAMINOPHEN W/ CODEINE [Concomitant]
     Dosage: UNK
     Dates: start: 20110101, end: 20110101
  3. NAPROXEN [Concomitant]
     Dosage: UNK
     Dates: start: 20110101, end: 20110101

REACTIONS (7)
  - PYREXIA [None]
  - RASH [None]
  - ARTHRALGIA [None]
  - HYPERHIDROSIS [None]
  - GINGIVAL ERYTHEMA [None]
  - SWELLING [None]
  - DECREASED APPETITE [None]
